FAERS Safety Report 14484615 (Version 2)
Quarter: 2018Q2

REPORT INFORMATION
  Report Type: Report from Study
  Country: CA (occurrence: CA)
  Receive Date: 20180205
  Receipt Date: 20180410
  Transmission Date: 20180711
  Serious: Yes (Other)
  Sender: FDA-Public Use
  Company Number: CA-ROCHE-2062654

PATIENT
  Age: 58 Year
  Sex: Female
  Weight: 72.9 kg

DRUGS (6)
  1. PRISTIQ EXTENDED-RELEASE [Concomitant]
     Active Substance: DESVENLAFAXINE SUCCINATE
     Indication: DEPRESSION
     Route: 048
     Dates: start: 20170321
  2. VEMURAFENIB. [Suspect]
     Active Substance: VEMURAFENIB
     Indication: MALIGNANT MELANOMA
     Dosage: DATE OF LAST DOSE (960MG) OF VEMURAFENIB PRIOR TO EVENT: 12/JAN/2018
     Route: 048
     Dates: start: 20180103
  3. TYLENOL [Concomitant]
     Active Substance: ACETAMINOPHEN
     Indication: DRUG REACTION WITH EOSINOPHILIA AND SYSTEMIC SYMPTOMS
     Dosage: TREATMENT FOR DRESS SYNDROME
     Route: 065
  4. TYLENOL [Concomitant]
     Active Substance: ACETAMINOPHEN
     Indication: PROPHYLAXIS
     Route: 048
     Dates: start: 20171230, end: 20171230
  5. COBIMETINIB. [Suspect]
     Active Substance: COBIMETINIB
     Indication: MALIGNANT MELANOMA
     Dosage: DATE OF LAST DOSE (60MG) OF COBIMETINIB PRIOR TO EVENT: 12/JAN/2018
     Route: 048
     Dates: start: 20180103
  6. VITAMIN B2 [Concomitant]
     Active Substance: RIBOFLAVIN
     Route: 048
     Dates: start: 20170622

REACTIONS (1)
  - Drug reaction with eosinophilia and systemic symptoms [Recovered/Resolved]

NARRATIVE: CASE EVENT DATE: 20180112
